FAERS Safety Report 17845179 (Version 2)
Quarter: 2020Q3

REPORT INFORMATION
  Report Type: Spontaneous
  Country: IT (occurrence: IT)
  Receive Date: 20200601
  Receipt Date: 20200702
  Transmission Date: 20201103
  Serious: Yes (Hospitalization)
  Sender: FDA-Public Use
  Company Number: IT-TEVA-2020-IT-1241649

PATIENT
  Age: 79 Year
  Sex: Male

DRUGS (12)
  1. MEDROL 16 MG COMPRESSE [Concomitant]
  2. KINERET [Concomitant]
     Active Substance: ANAKINRA
     Indication: CORONAVIRUS INFECTION
     Dosage: 4 DOSAGE FORMS
     Route: 042
     Dates: start: 20200404, end: 20200410
  3. OMEPRAZOLE SODIUM [Concomitant]
     Active Substance: OMEPRAZOLE SODIUM
  4. DARUNAVIR [Suspect]
     Active Substance: DARUNAVIR
     Indication: CORONAVIRUS INFECTION
     Dosage: 800MG
     Route: 048
     Dates: start: 20200327, end: 20200407
  5. RITONAVIR SANDOZ [Suspect]
     Active Substance: RITONAVIR
     Indication: CORONAVIRUS INFECTION
     Dosage: 1 DOSAGE FORM
     Route: 048
     Dates: start: 20200327, end: 20200407
  6. PLAQUENIL [Suspect]
     Active Substance: HYDROXYCHLOROQUINE SULFATE
     Indication: CORONAVIRUS INFECTION
     Dosage: 2 DOSAGE FORM
     Route: 048
     Dates: start: 20200327, end: 20200415
  7. ARIXTRA 2.5 MG/0.5 ML SOLUTION FOR INJECTION PRE?FILLED SYRINGE [Concomitant]
     Indication: THROMBOSIS PROPHYLAXIS
     Dosage: 1 DOSAGE FORM
     Route: 058
     Dates: start: 20200318, end: 20200427
  8. CLEXANE [Concomitant]
     Active Substance: ENOXAPARIN SODIUM
     Indication: THROMBOSIS PROPHYLAXIS
     Dosage: 1 DOSAGE FORM
     Route: 058
     Dates: start: 20200328, end: 20200418
  9. FOLINA 5 MG CAPSULE MOLLI [Concomitant]
  10. TAZOCIN 4 G/0,5 G POLVERE PER SOLUZIONE PER INFUSIONE [Concomitant]
     Active Substance: PIPERACILLIN SODIUM\TAZOBACTAM SODIUM
     Indication: CORONAVIRUS INFECTION
     Dosage: 1 DOSAGE FORM
     Route: 042
     Dates: start: 20200327, end: 20200416
  11. AZITROMICINA TEVA 500 MG COMPRESSE RIVESTITE CON FILM [Concomitant]
     Active Substance: AZITHROMYCIN HEMIETHANOLATE MONOHYDRATE
     Indication: CORONAVIRUS INFECTION
     Dosage: 1 DOSAGE FORM
     Route: 048
     Dates: start: 20200327, end: 20200414
  12. DIBASE 10.000 U.I./ML GOCCE ORALI, SOLUZIONE [Concomitant]
     Active Substance: CHOLECALCIFEROL

REACTIONS (4)
  - Erythema [Not Recovered/Not Resolved]
  - Acute generalised exanthematous pustulosis [Not Recovered/Not Resolved]
  - Rash pustular [Not Recovered/Not Resolved]
  - Off label use [Not Recovered/Not Resolved]

NARRATIVE: CASE EVENT DATE: 20200416
